FAERS Safety Report 8160076-5 (Version None)
Quarter: 2012Q1

REPORT INFORMATION
  Report Type: 
  Country: None (occurrence: None)
  Receive Date: 20120223
  Receipt Date: 20120216
  Transmission Date: 20120608
  Serious: Yes (Hospitalization)
  Sender: FDA-Public Use
  Company Number: PHHY2012GB013499

PATIENT
  Age: 46 Year
  Sex: Male

DRUGS (2)
  1. OMEPRAZOLE [Suspect]
     Indication: BARRETT'S OESOPHAGUS
     Dosage: 40 MG, DAILY
  2. OMEPRAZOLE [Suspect]
     Dosage: 20 MG, DAILY

REACTIONS (8)
  - VOMITING [None]
  - HYPOCALCAEMIA [None]
  - MUSCLE SPASMS [None]
  - ELECTROCARDIOGRAM QT PROLONGED [None]
  - DIARRHOEA [None]
  - HYPOMAGNESAEMIA [None]
  - TETANY [None]
  - BLOOD PARATHYROID HORMONE DECREASED [None]
